FAERS Safety Report 4607451-0 (Version None)
Quarter: 2005Q1

REPORT INFORMATION
  Report Type: 
  Country: None (occurrence: None)
  Receive Date: 20050309
  Receipt Date: 20050225
  Transmission Date: 20050727
  Serious: Yes (Hospitalization, Other)
  Sender: FDA-Public Use
  Company Number: 2004-11-0500

PATIENT
  Age: 29 Year
  Sex: Female

DRUGS (8)
  1. TEMODAL [Suspect]
     Indication: BRAIN NEOPLASM
     Dosage: SEE IMAGE
     Dates: start: 20040719, end: 20040825
  2. TEMODAL [Suspect]
     Indication: BRAIN NEOPLASM
     Dosage: SEE IMAGE
     Dates: start: 20040719, end: 20041109
  3. TEMODAL [Suspect]
     Indication: BRAIN NEOPLASM
     Dosage: SEE IMAGE
     Dates: start: 20041108, end: 20041109
  4. RADIATION THERAPY [Concomitant]
  5. TRILEPTAL [Concomitant]
  6. TRIFLUCAN [Concomitant]
  7. METHYLPREDNISOLONE [Concomitant]
  8. OMEPRAZOLE [Concomitant]

REACTIONS (4)
  - RASH GENERALISED [None]
  - SKIN REACTION [None]
  - TOXIC SKIN ERUPTION [None]
  - URTICARIA GENERALISED [None]
